FAERS Safety Report 10706375 (Version 1)
Quarter: 2015Q1

REPORT INFORMATION
  Report Type: Spontaneous
  Country: US (occurrence: None)
  Receive Date: 20150109
  Receipt Date: 20150109
  Transmission Date: 20150721
  Serious: Yes (Hospitalization)
  Sender: FDA-Public Use
  Company Number: None

PATIENT
  Age: 63 Year
  Sex: Female
  Weight: 56 kg

DRUGS (10)
  1. ALBUTEROL NEBULIZER [Concomitant]
     Active Substance: ALBUTEROL
  2. PLAVIX [Concomitant]
     Active Substance: CLOPIDOGREL BISULFATE
  3. PRAVASTATIN [Concomitant]
     Active Substance: PRAVASTATIN\PRAVASTATIN SODIUM
  4. MYRBETRIQ [Suspect]
     Active Substance: MIRABEGRON
     Indication: HYPERTONIC BLADDER
     Dosage: 1 TABLET
     Route: 048
     Dates: start: 20141211, end: 20141212
  5. CARVEDILOL. [Concomitant]
     Active Substance: CARVEDILOL
  6. LORAZEPAM. [Concomitant]
     Active Substance: LORAZEPAM
  7. ASPIRIN. [Concomitant]
     Active Substance: ASPIRIN
  8. SUCRALFATE. [Concomitant]
     Active Substance: SUCRALFATE
  9. PROTONIX [Concomitant]
     Active Substance: PANTOPRAZOLE SODIUM
  10. LISINOPRIL. [Concomitant]
     Active Substance: LISINOPRIL

REACTIONS (6)
  - Pruritus [None]
  - Chronic obstructive pulmonary disease [None]
  - Dyspnoea [None]
  - Urticaria [None]
  - Electrocardiogram QT prolonged [None]
  - Acute myocardial infarction [None]

NARRATIVE: CASE EVENT DATE: 20141212
